FAERS Safety Report 13382102 (Version 5)
Quarter: 2018Q3

REPORT INFORMATION
  Report Type: Report from Study
  Country: JP (occurrence: JP)
  Receive Date: 20170329
  Receipt Date: 20180917
  Transmission Date: 20181010
  Serious: Yes (Hospitalization)
  Sender: FDA-Public Use
  Company Number: PHJP2017JP009874

PATIENT
  Age: 69 Year
  Sex: Female

DRUGS (30)
  1. SIGNIFOR LAR [Suspect]
     Active Substance: PASIREOTIDE
     Dosage: 20 MG, UNK
     Route: 030
     Dates: start: 20180124
  2. SIGNIFOR LAR [Suspect]
     Active Substance: PASIREOTIDE
     Dosage: 20 MG, UNK
     Route: 030
     Dates: start: 20180425
  3. SIGNIFOR LAR [Suspect]
     Active Substance: PASIREOTIDE
     Dosage: 20 MG, UNK
     Route: 030
     Dates: start: 20180620
  4. SIGNIFOR LAR [Suspect]
     Active Substance: PASIREOTIDE
     Indication: ACROMEGALY
     Dosage: 40 MG, UNK
     Route: 030
     Dates: start: 20170308
  5. NOVOLIN N [Concomitant]
     Active Substance: INSULIN HUMAN
     Dosage: 5 IU, UNK
     Route: 065
     Dates: start: 20170316, end: 20170316
  6. NOVOLIN N [Concomitant]
     Active Substance: INSULIN HUMAN
     Dosage: 7 IU, UNK
     Route: 065
     Dates: start: 20170317, end: 20170317
  7. MITIGLINIDE CALCIUM [Concomitant]
     Dosage: 15 MG, UNK
     Route: 048
     Dates: start: 20171116, end: 20180221
  8. SIGNIFOR LAR [Suspect]
     Active Substance: PASIREOTIDE
     Dosage: 20 MG, UNK
     Route: 030
     Dates: start: 20170607
  9. SIGNIFOR LAR [Suspect]
     Active Substance: PASIREOTIDE
     Dosage: 20 MG, UNK
     Route: 030
     Dates: start: 20170705
  10. SIGNIFOR LAR [Suspect]
     Active Substance: PASIREOTIDE
     Dosage: 20 MG, UNK
     Route: 030
     Dates: start: 20171227
  11. SIGNIFOR LAR [Suspect]
     Active Substance: PASIREOTIDE
     Dosage: 20 MG, UNK
     Route: 030
     Dates: start: 20180328
  12. NOVOLIN N [Concomitant]
     Active Substance: INSULIN HUMAN
     Indication: DIABETES MELLITUS
     Dosage: 3 IU, UNK
     Route: 058
     Dates: start: 20170314, end: 20170315
  13. NOVOLIN N [Concomitant]
     Active Substance: INSULIN HUMAN
     Dosage: 14 IU, UNK
     Route: 065
     Dates: start: 20170320, end: 20170328
  14. SIGNIFOR LAR [Suspect]
     Active Substance: PASIREOTIDE
     Dosage: 20 MG, UNK
     Route: 030
     Dates: start: 20171004
  15. CABASER [Concomitant]
     Active Substance: CABERGOLINE
     Indication: PRODUCT USED FOR UNKNOWN INDICATION
     Dosage: UNK
     Route: 048
  16. TENELIA [Concomitant]
     Active Substance: TENELIGLIPTIN
     Indication: DIABETES MELLITUS
     Dosage: 20 MG, UNK
     Route: 048
     Dates: start: 20150708, end: 20180627
  17. PIOGLITAZONE. [Concomitant]
     Active Substance: PIOGLITAZONE
     Indication: DIABETES MELLITUS
     Dosage: 7.5 MG, UNK
     Route: 048
     Dates: start: 20160112, end: 20171115
  18. SIGNIFOR LAR [Suspect]
     Active Substance: PASIREOTIDE
     Dosage: 40 MG, UNK
     Route: 030
     Dates: start: 20170510
  19. SIGNIFOR LAR [Suspect]
     Active Substance: PASIREOTIDE
     Dosage: 20 MG, UNK
     Route: 030
     Dates: start: 20170802
  20. SIGNIFOR LAR [Suspect]
     Active Substance: PASIREOTIDE
     Dosage: 20 MG, UNK
     Route: 030
     Dates: start: 20180221
  21. METGLUCO [Concomitant]
     Active Substance: METFORMIN HYDROCHLORIDE
     Indication: DIABETES MELLITUS
     Dosage: 1500 MG, UNK
     Route: 048
     Dates: start: 20151027, end: 20170315
  22. SIGNIFOR LAR [Suspect]
     Active Substance: PASIREOTIDE
     Dosage: 40 MG, UNK
     Route: 030
     Dates: start: 20170405
  23. NOVOLIN N [Concomitant]
     Active Substance: INSULIN HUMAN
     Dosage: 10 IU, UNK
     Route: 065
     Dates: start: 20170318, end: 20170318
  24. SIGNIFOR LAR [Suspect]
     Active Substance: PASIREOTIDE
     Dosage: 20 MG, UNK
     Route: 030
     Dates: start: 20170906
  25. SIGNIFOR LAR [Suspect]
     Active Substance: PASIREOTIDE
     Dosage: 20 MG, UNK
     Route: 030
     Dates: start: 20171101
  26. SIGNIFOR LAR [Suspect]
     Active Substance: PASIREOTIDE
     Dosage: 20 MG, UNK
     Route: 030
     Dates: start: 20171129
  27. SIGNIFOR LAR [Suspect]
     Active Substance: PASIREOTIDE
     Dosage: 20 MG, UNK
     Route: 030
     Dates: start: 20180523
  28. NOVOLIN N [Concomitant]
     Active Substance: INSULIN HUMAN
     Dosage: 14 IU, UNK
     Route: 065
     Dates: start: 20170319, end: 20170319
  29. MITIGLINIDE CALCIUM [Concomitant]
     Indication: DIABETES MELLITUS
     Dosage: 10 MG, UNK
     Route: 048
     Dates: start: 20170906, end: 20171115
  30. MITIGLINIDE CALCIUM [Concomitant]
     Dosage: 30 MG, UNK
     Route: 048
     Dates: start: 20180222, end: 20180627

REACTIONS (5)
  - Diabetes mellitus [Recovering/Resolving]
  - Hypoglycaemia [Unknown]
  - Hepatic function abnormal [Recovering/Resolving]
  - Arthralgia [Recovered/Resolved]
  - Constipation [Recovering/Resolving]

NARRATIVE: CASE EVENT DATE: 20170313
